FAERS Safety Report 20376506 (Version 7)
Quarter: 2022Q2

REPORT INFORMATION
  Report Type: Report from Study
  Country: SK (occurrence: SK)
  Receive Date: 20220125
  Receipt Date: 20220415
  Transmission Date: 20220721
  Serious: Yes (Hospitalization)
  Sender: FDA-Public Use
  Company Number: SK-PFIZER INC-202200083698

PATIENT
  Age: 24 Year
  Sex: Female
  Weight: 55.4 kg

DRUGS (5)
  1. ABROCITINIB [Suspect]
     Active Substance: ABROCITINIB
     Indication: Dermatitis atopic
     Dosage: 200 MG, 1X/DAY
     Route: 048
     Dates: start: 20210610, end: 20220110
  2. DESOGESTREL [Concomitant]
     Active Substance: DESOGESTREL
     Indication: Contraception
     Dosage: UG, 1X/DAY
     Route: 048
     Dates: start: 20200919, end: 20211213
  3. CETIRIZINE HYDROCHLORIDE [Concomitant]
     Active Substance: CETIRIZINE HYDROCHLORIDE
     Indication: Dermatitis atopic
     Dosage: UNK
     Dates: start: 20210601
  4. ERYTHROMYCIN [Concomitant]
     Active Substance: ERYTHROMYCIN
     Indication: Acne
     Dosage: UNK
     Dates: start: 20210331
  5. CHLORAMPHENICOLUM [Concomitant]
     Indication: Staphylococcal impetigo
     Dosage: UNK
     Dates: start: 20210623

REACTIONS (1)
  - Fibroadenoma of breast [Recovered/Resolved]

NARRATIVE: CASE EVENT DATE: 20220112
